FAERS Safety Report 9468508 (Version 2)
Quarter: 2013Q3

REPORT INFORMATION
  Report Type: Spontaneous
  Country: US (occurrence: US)
  Receive Date: 20130821
  Receipt Date: 20130821
  Transmission Date: 20140515
  Serious: No
  Sender: FDA-Public Use
  Company Number: US-PFIZER INC-2013186455

PATIENT
  Age: 72 Year
  Sex: Female
  Weight: 47.62 kg

DRUGS (5)
  1. LYRICA [Suspect]
     Indication: LIMB DISCOMFORT
     Dosage: 50 MG, 2X/DAY
  2. LYRICA [Suspect]
     Dosage: UNK, 1X/DAY
     Dates: start: 2013
  3. SYNTHROID [Concomitant]
     Dosage: UNK
  4. KLONOPIN [Concomitant]
     Dosage: UNK
  5. DEMADEX [Concomitant]
     Dosage: UNK

REACTIONS (5)
  - Dizziness [Unknown]
  - Constipation [Unknown]
  - Dry mouth [Unknown]
  - Migraine [Unknown]
  - Headache [Unknown]
